FAERS Safety Report 24127081 (Version 1)
Quarter: 2024Q3

REPORT INFORMATION
  Report Type: Spontaneous
  Country: US (occurrence: None)
  Receive Date: 20240723
  Receipt Date: 20240723
  Transmission Date: 20241017
  Serious: Yes (Hospitalization)
  Sender: Public
  Company Number: None

PATIENT
  Age: 4 Year
  Sex: Female
  Weight: 18.8 kg

DRUGS (3)
  1. CYCLOPHOSPHAMIDE [Suspect]
     Active Substance: CYCLOPHOSPHAMIDE
     Dates: end: 20240618
  2. ETOPOSIDE [Suspect]
     Active Substance: ETOPOSIDE
     Dates: end: 20240608
  3. TACROLIMUS [Suspect]
     Active Substance: TACROLIMUS
     Dates: end: 20240716

REACTIONS (5)
  - Aggression [None]
  - Hypertension [None]
  - Self-destructive behaviour [None]
  - Emotional disorder [None]
  - Aggression [None]

NARRATIVE: CASE EVENT DATE: 20240713
